FAERS Safety Report 10028642 (Version 1)
Quarter: 2014Q1

REPORT INFORMATION
  Report Type: Spontaneous
  Country: IT (occurrence: IT)
  Receive Date: 20140321
  Receipt Date: 20140321
  Transmission Date: 20141002
  Serious: Yes (Other)
  Sender: FDA-Public Use
  Company Number: PHHY2014IT032910

PATIENT
  Age: 82 Year
  Sex: Female

DRUGS (9)
  1. GLYCERYL TRINITRATE [Suspect]
     Dosage: 10 MG, DAILY
     Route: 062
     Dates: start: 20130601, end: 20140205
  2. FUROSEMIDE [Suspect]
     Dosage: 100 MG, DAILY
     Route: 048
     Dates: start: 20130601, end: 20140205
  3. SEQUACOR [Suspect]
     Dosage: 2.5 MG, DAILY
     Route: 048
     Dates: start: 20130601, end: 20140205
  4. LUVION [Suspect]
     Dosage: 25 MG, DAILY
     Route: 048
     Dates: start: 20130601, end: 20140205
  5. TORVAST [Concomitant]
  6. PLAVIX [Concomitant]
  7. PANTORC [Concomitant]
  8. DEURSIL [Concomitant]
  9. ASA [Concomitant]
     Dosage: 100 MG, UNK

REACTIONS (1)
  - Syncope [Recovering/Resolving]
